FAERS Safety Report 10010081 (Version 2)
Quarter: 2014Q1

REPORT INFORMATION
  Report Type: Spontaneous
  Country: US (occurrence: US)
  Receive Date: 20140312
  Receipt Date: 20140312
  Transmission Date: 20141002
  Serious: No
  Sender: FDA-Public Use
  Company Number: US-INCYTE CORPORATION-2013IN000448

PATIENT
  Age: 74 Year
  Sex: Female
  Weight: 84.1 kg

DRUGS (2)
  1. JAKAFI [Suspect]
     Indication: MYELOFIBROSIS
     Dosage: 15 MG, BID
     Route: 048
     Dates: start: 20120119
  2. JAKAFI [Suspect]
     Indication: IRRITABLE BOWEL SYNDROME
     Dosage: 15 MG QAM AND 20 MG QHS
     Route: 048
     Dates: start: 20130208

REACTIONS (1)
  - Irritable bowel syndrome [Recovered/Resolved]
